FAERS Safety Report 20875126 (Version 2)
Quarter: 2022Q2

REPORT INFORMATION
  Report Type: Report from Study
  Country: DE (occurrence: None)
  Receive Date: 20220526
  Receipt Date: 20220601
  Transmission Date: 20220721
  Serious: Yes (Hospitalization)
  Sender: FDA-Public Use
  Company Number: DE-ROCHE-3053262

PATIENT
  Age: 57 Year
  Sex: Female
  Weight: 71.1 kg

DRUGS (17)
  1. ATEZOLIZUMAB [Suspect]
     Active Substance: ATEZOLIZUMAB
     Indication: Triple negative breast cancer
     Dosage: DATE OF LAST DOSE PRIOR TO SAE: 07/APR/2022?DATE OF LAST DOSE PRIOR TO SAE: 24/FEB/2022
     Route: 041
     Dates: start: 20211111
  2. PACLITAXEL [Suspect]
     Active Substance: PACLITAXEL
     Indication: Triple negative breast cancer
     Dosage: DATE OF LAST DOSE PRIOR TO SAE: 27/JAN/2022
     Route: 042
     Dates: start: 20211111
  3. CYCLOPHOSPHAMIDE [Suspect]
     Active Substance: CYCLOPHOSPHAMIDE
     Indication: Triple negative breast cancer
     Dosage: DATE OF LAST DOSE PRIOR TO SAE: 07 APR 2022?DOSE REDUCED: DATE OF LAST DOSE PRIOR TO SAE: 24/FEB/202
     Route: 042
     Dates: start: 20220203
  4. CARBOPLATIN [Suspect]
     Active Substance: CARBOPLATIN
     Indication: Triple negative breast cancer
     Dosage: DATE OF LAST DOSE PRIOR TO SAE: 27 JAN 2022
     Route: 042
     Dates: start: 20211111
  5. EPIRUBICIN [Suspect]
     Active Substance: EPIRUBICIN
     Indication: Triple negative breast cancer
     Dosage: DOSE REDUCED ON ,DATE OF LAST DOSE PRIOR TO SAE:07/APR/2022: 135 MG EVERY 3 WEEKS?DATE OF LAST DOSE
     Route: 042
     Dates: start: 20220203
  6. DEXAMETHASONE [Concomitant]
     Active Substance: DEXAMETHASONE
     Dates: start: 20211111, end: 20220120
  7. DEXAMETHASONE [Concomitant]
     Active Substance: DEXAMETHASONE
     Dates: start: 20220203, end: 20220407
  8. DIMETHINDENE MALEATE [Concomitant]
     Active Substance: DIMETHINDENE MALEATE
     Dates: start: 20211111, end: 20220127
  9. LOPERAMIDE [Concomitant]
     Active Substance: LOPERAMIDE
     Dates: start: 20211210, end: 20220413
  10. BISOPROLOL [Concomitant]
     Active Substance: BISOPROLOL
     Dates: start: 20220103, end: 20220213
  11. MCP [Concomitant]
     Active Substance: METOCLOPRAMIDE HYDROCHLORIDE
     Dates: start: 20211111, end: 20220413
  12. FERROUS GLYCINE SULFATE [Concomitant]
     Active Substance: FERROUS GLYCINE SULFATE
     Dates: start: 20220301
  13. PANTOPRAZOLE [Concomitant]
     Active Substance: PANTOPRAZOLE
     Dates: start: 20220311, end: 20220314
  14. PANTOPRAZOLE [Concomitant]
     Active Substance: PANTOPRAZOLE
     Dates: start: 20220314, end: 20220421
  15. EMEND [Concomitant]
     Active Substance: APREPITANT
     Dosage: 125/80 MG OTHER
     Dates: start: 20220203, end: 20220407
  16. MESNA [Concomitant]
     Active Substance: MESNA
     Dosage: OTHER
     Dates: start: 20220203, end: 20220410
  17. ONDANSETRON [Concomitant]
     Active Substance: ONDANSETRON
     Dosage: OTHER
     Dates: start: 20220203, end: 20220414

REACTIONS (3)
  - Neutropenia [Recovered/Resolved]
  - Peritonsillar abscess [Recovered/Resolved]
  - Leukopenia [Recovered/Resolved]

NARRATIVE: CASE EVENT DATE: 20220214
